FAERS Safety Report 5345271-2 (Version None)
Quarter: 2007Q2

REPORT INFORMATION
  Report Type: 
  Country: None (occurrence: None)
  Receive Date: 20070601
  Receipt Date: 20070518
  Transmission Date: 20071010
  Serious: Yes (Other)
  Sender: FDA-Public Use
  Company Number: TRP_0934_2007

PATIENT
  Sex: Female
  Weight: 71.6683 kg

DRUGS (3)
  1. RIBASPHERE [Suspect]
     Indication: HEPATITIS C
     Dosage: (1000 MG QD ORAL)
     Route: 048
     Dates: start: 20061001, end: 20070101
  2. RIBASPHERE [Suspect]
     Indication: HEPATITIS C
     Dosage: (800 MG QD ORAL)
     Route: 048
     Dates: start: 20070101
  3. PEG-INTRON [Suspect]
     Indication: HEPATITIS C
     Dosage: (120 UG 1X/WEEK SUBCUTANEOUS)
     Route: 058
     Dates: start: 20061001

REACTIONS (11)
  - ALOPECIA [None]
  - ASTHENIA [None]
  - DANDRUFF [None]
  - DRY SKIN [None]
  - DYSPEPSIA [None]
  - FATIGUE [None]
  - INFLUENZA LIKE ILLNESS [None]
  - PRURITUS [None]
  - RASH [None]
  - SKIN EXFOLIATION [None]
  - SWOLLEN TONGUE [None]
